FAERS Safety Report 25209151 (Version 1)
Quarter: 2025Q2

REPORT INFORMATION
  Report Type: Spontaneous
  Country: US (occurrence: None)
  Receive Date: 20250417
  Receipt Date: 20250417
  Transmission Date: 20250716
  Serious: Yes (Hospitalization, Disabling)
  Sender: FDA-CTU
  Company Number: None

PATIENT
  Age: 64 Year
  Sex: Female
  Weight: 42.3 kg

DRUGS (8)
  1. KEPPRA [Suspect]
     Active Substance: LEVETIRACETAM
     Indication: Seizure
     Dosage: FREQUENCY : TWICE A DAY;?
     Route: 048
  2. DEXLANSOPRAZOLE [Concomitant]
     Active Substance: DEXLANSOPRAZOLE
  3. KLONOPIN [Concomitant]
     Active Substance: CLONAZEPAM
  4. TORADOL [Concomitant]
     Active Substance: KETOROLAC TROMETHAMINE
  5. LISINOPRIL [Concomitant]
     Active Substance: LISINOPRIL
  6. FLORICET [Concomitant]
  7. LIDOCAINE PATCH [Concomitant]
     Active Substance: LIDOCAINE
  8. CRANBERRY PILLS [Concomitant]

REACTIONS (38)
  - Dyspnoea [None]
  - Palpitations [None]
  - Pyrexia [None]
  - Swelling [None]
  - Dysphagia [None]
  - Rash [None]
  - Nausea [None]
  - Vomiting [None]
  - Dizziness [None]
  - Diplopia [None]
  - Muscle spasms [None]
  - Arthralgia [None]
  - Chromaturia [None]
  - Chills [None]
  - Neck pain [None]
  - Headache [None]
  - Hypoaesthesia [None]
  - Hypoaesthesia [None]
  - Depression [None]
  - Crying [None]
  - Pain [None]
  - Eye irritation [None]
  - Insomnia [None]
  - Agitation [None]
  - Balance disorder [None]
  - Infection [None]
  - Decreased appetite [None]
  - Seizure [None]
  - Skin burning sensation [None]
  - Confusional state [None]
  - Somnolence [None]
  - Asthenia [None]
  - Nasal congestion [None]
  - Tachycardia [None]
  - Dysarthria [None]
  - Gait disturbance [None]
  - Musculoskeletal stiffness [None]
  - Tremor [None]

NARRATIVE: CASE EVENT DATE: 20250102
